FAERS Safety Report 8292414-7 (Version None)
Quarter: 2012Q2

REPORT INFORMATION
  Report Type: 
  Country: None (occurrence: None)
  Receive Date: 20120417
  Receipt Date: 20120416
  Transmission Date: 20120825
  Serious: Yes (Disabling, Other)
  Sender: FDA-Public Use
  Company Number: GB-PFIZER INC-2012046583

PATIENT
  Age: 44 Year
  Sex: Female

DRUGS (1)
  1. VARENICLINE TARTRATE [Suspect]
     Indication: SMOKING CESSATION THERAPY
     Dosage: 0.5 MG, 1X/DAY
     Dates: start: 20120213, end: 20120217

REACTIONS (5)
  - DEPRESSED MOOD [None]
  - COORDINATION ABNORMAL [None]
  - FEELING ABNORMAL [None]
  - ASTHENIA [None]
  - MALAISE [None]
